FAERS Safety Report 20205862 (Version 1)
Quarter: 2021Q4

REPORT INFORMATION
  Report Type: Spontaneous
  Country: CN (occurrence: CN)
  Receive Date: 20211220
  Receipt Date: 20211220
  Transmission Date: 20220303
  Serious: Yes (Other)
  Sender: FDA-Public Use
  Company Number: CN-NOVARTISPH-NVSC2021CN287983

PATIENT
  Age: 35 Year
  Sex: Male

DRUGS (1)
  1. DIOVAN [Suspect]
     Active Substance: VALSARTAN
     Indication: Protein urine
     Dosage: 1 DOSAGE FORM (PILL AT AROUND 8:00 AM), QD (FOR ABOUT 5-6YEARS)
     Route: 048

REACTIONS (3)
  - Blood pressure increased [Unknown]
  - Off label use [Unknown]
  - Drug ineffective [Unknown]
